FAERS Safety Report 11098678 (Version 1)
Quarter: 2015Q2

REPORT INFORMATION
  Report Type: Spontaneous
  Country: FR (occurrence: FR)
  Receive Date: 20150507
  Receipt Date: 20150507
  Transmission Date: 20150821
  Serious: Yes (Hospitalization)
  Sender: FDA-Public Use
  Company Number: FR-INTERMUNE, INC.-201504IM015004

PATIENT
  Sex: Male

DRUGS (3)
  1. ESBRIET [Suspect]
     Active Substance: PIRFENIDONE
     Indication: LUNG TRANSPLANT REJECTION
     Dosage: 801 MG
     Route: 048
     Dates: start: 20150225
  2. ESBRIET [Suspect]
     Active Substance: PIRFENIDONE
     Dosage: 2403 MG
     Route: 048
     Dates: start: 201503, end: 20150417
  3. ESBRIET [Suspect]
     Active Substance: PIRFENIDONE
     Dosage: 1602 MG
     Route: 048
     Dates: start: 201503

REACTIONS (2)
  - General physical health deterioration [Not Recovered/Not Resolved]
  - Lung carcinoma cell type unspecified recurrent [Not Recovered/Not Resolved]

NARRATIVE: CASE EVENT DATE: 2015
